FAERS Safety Report 9883220 (Version 1)
Quarter: 2014Q1

REPORT INFORMATION
  Report Type: Spontaneous
  Country: TR (occurrence: TR)
  Receive Date: 20140208
  Receipt Date: 20140208
  Transmission Date: 20141002
  Serious: Yes (Disabling)
  Sender: FDA-Public Use
  Company Number: TR-MYLANLABS-2014S1002109

PATIENT
  Age: 17 Year
  Sex: Female

DRUGS (3)
  1. TACROLIMUS [Suspect]
     Dosage: 0.1 MG/KG/DAY
     Route: 065
  2. MYCOPHENOLATE MOFETIL [Concomitant]
     Dosage: 600 MG/M2/DAY
     Route: 065
  3. PREDNISOLONE [Concomitant]
     Dosage: 0.5 MG/KG/DAY
     Route: 048

REACTIONS (2)
  - Sudden hearing loss [Recovering/Resolving]
  - Communication disorder [Not Recovered/Not Resolved]
